FAERS Safety Report 19984021 (Version 1)
Quarter: 2021Q4

REPORT INFORMATION
  Report Type: Report from Study
  Country: US (occurrence: US)
  Receive Date: 20211021
  Receipt Date: 20211021
  Transmission Date: 20220303
  Serious: Yes (Life-Threatening, Hospitalization, Other)
  Sender: FDA-Public Use
  Company Number: US-BRISTOL-MYERS SQUIBB COMPANY-BMS-2021-106580

PATIENT
  Age: 81 Year
  Sex: Male
  Weight: 98.88 kg

DRUGS (3)
  1. NIVOLUMAB [Suspect]
     Active Substance: NIVOLUMAB
     Indication: Malignant melanoma
     Dosage: UNK
     Route: 042
     Dates: start: 20210602, end: 20210616
  2. VALSARTAN [Concomitant]
     Active Substance: VALSARTAN
     Indication: Hypertension
     Dosage: UNK
     Route: 065
  3. LEVOLO [Concomitant]
     Indication: Prophylaxis

REACTIONS (4)
  - Autonomic nervous system imbalance [Unknown]
  - Myocarditis [Unknown]
  - Myasthenia gravis [Unknown]
  - Prescribed underdose [Unknown]
